FAERS Safety Report 13394623 (Version 1)
Quarter: 2017Q2

REPORT INFORMATION
  Report Type: Spontaneous
  Country: FR (occurrence: FR)
  Receive Date: 20170403
  Receipt Date: 20170403
  Transmission Date: 20170830
  Serious: Yes (Hospitalization)
  Sender: FDA-Public Use
  Company Number: FR-ROCHE-1914298

PATIENT
  Age: 95 Year
  Sex: Male

DRUGS (3)
  1. ROCEPHINE [Suspect]
     Active Substance: CEFTRIAXONE SODIUM
     Indication: PSEUDOMONAL SEPSIS
     Route: 058
     Dates: start: 20170228
  2. XARELTO [Suspect]
     Active Substance: RIVAROXABAN
     Indication: ATRIAL FIBRILLATION
     Route: 048
     Dates: start: 20140129, end: 20170310
  3. OFLOCET [Interacting]
     Active Substance: OFLOXACIN
     Indication: PSEUDOMONAL SEPSIS
     Route: 048
     Dates: start: 20170228

REACTIONS (2)
  - Traumatic haematoma [Recovering/Resolving]
  - Drug interaction [Unknown]

NARRATIVE: CASE EVENT DATE: 20170309
